FAERS Safety Report 14831433 (Version 3)
Quarter: 2018Q4

REPORT INFORMATION
  Report Type: Report from Study
  Country: None (occurrence: DE)
  Receive Date: 20180501
  Receipt Date: 20181203
  Transmission Date: 20190204
  Serious: Yes (Hospitalization, Other)
  Sender: FDA-Public Use
  Company Number: DE-ABBVIE-18K-062-2336245-00

PATIENT
  Age: 49 Year
  Sex: Female
  Weight: 61 kg

DRUGS (1)
  1. HUMIRA [Suspect]
     Active Substance: ADALIMUMAB
     Indication: PSORIASIS
     Route: 058
     Dates: start: 20161121, end: 20180215

REACTIONS (9)
  - Psoriasis [Recovered/Resolved]
  - Collagen disorder [Unknown]
  - Anti-SRP antibody positive [Recovered/Resolved]
  - Lupus-like syndrome [Unknown]
  - Diarrhoea [Unknown]
  - Antinuclear antibody positive [Recovered/Resolved]
  - Myalgia [Recovered/Resolved]
  - Arthralgia [Recovered/Resolved]
  - Double stranded DNA antibody positive [Recovered/Resolved]

NARRATIVE: CASE EVENT DATE: 2016
